FAERS Safety Report 24679919 (Version 1)
Quarter: 2024Q4

REPORT INFORMATION
  Report Type: Spontaneous
  Country: US (occurrence: US)
  Receive Date: 20241129
  Receipt Date: 20241129
  Transmission Date: 20250115
  Serious: No
  Sender: TEVA
  Company Number: US-TEVA-VS-3259541

PATIENT
  Age: 54 Year
  Sex: Male
  Weight: 68.95 kg

DRUGS (1)
  1. CINQAIR [Suspect]
     Active Substance: RESLIZUMAB
     Indication: Asthma
     Route: 065
     Dates: end: 20240523

REACTIONS (11)
  - Back pain [Unknown]
  - Product dose omission issue [Unknown]
  - Malaise [Unknown]
  - Dyspnoea [Unknown]
  - Insomnia [Unknown]
  - Secretion discharge [Unknown]
  - Sneezing [Unknown]
  - Cough [Unknown]
  - Weight decreased [Unknown]
  - Product supply issue [Unknown]
  - Feeling abnormal [Unknown]

NARRATIVE: CASE EVENT DATE: 20240101
